FAERS Safety Report 6991209 (Version 31)
Quarter: 2012Q4

REPORT INFORMATION
  Report Type: 
  Country: CA (occurrence: CA)
  Receive Date: 20090511
  Receipt Date: 20121102
  Transmission Date: 20130627
  Serious: Yes (Hospitalization, Other)
  Sender: FDA-Public Use
  Company Number: PHHY2009CA14994

PATIENT
  Age: 53 Year
  Sex: Female

DRUGS (1)
  1. ZOMETA [Suspect]
     Indication: BREAST CANCER METASTATIC
     Dosage: 4 mg, TIW
     Route: 042
     Dates: start: 20080822, end: 20100930

REACTIONS (52)
  - Femur fracture [Unknown]
  - Fall [Unknown]
  - Syncope [Unknown]
  - Aggression [Unknown]
  - Depressed mood [Unknown]
  - Metastases to central nervous system [Unknown]
  - Pyrexia [Unknown]
  - Back pain [Unknown]
  - Abdominal pain upper [Unknown]
  - Confusional state [Unknown]
  - Dyspnoea [Unknown]
  - Blood alkaline phosphatase increased [Unknown]
  - Platelet count increased [Unknown]
  - Monocyte count increased [Unknown]
  - Blood glucose increased [Unknown]
  - Blood albumin decreased [Unknown]
  - Blood bilirubin decreased [Unknown]
  - Blood sodium decreased [Unknown]
  - Blood chloride decreased [Unknown]
  - Alanine aminotransferase decreased [Unknown]
  - Blood lactate dehydrogenase increased [Unknown]
  - Neutrophil count increased [Unknown]
  - Metamyelocyte count increased [Unknown]
  - Myelocyte count increased [Unknown]
  - Promyelocyte count increased [Unknown]
  - Neutrophil count decreased [Unknown]
  - Heart rate increased [Unknown]
  - General physical health deterioration [Unknown]
  - Chest pain [Unknown]
  - Hypophagia [Unknown]
  - Blood potassium decreased [Unknown]
  - Blood urea decreased [Not Recovered/Not Resolved]
  - Haematocrit decreased [Unknown]
  - Mean cell haemoglobin increased [Unknown]
  - Lymphocyte count decreased [Unknown]
  - Red cell distribution width increased [Unknown]
  - Blood calcium decreased [Unknown]
  - Eosinophil count decreased [Unknown]
  - White blood cell count decreased [Unknown]
  - Monocyte count decreased [Unknown]
  - Red blood cell sedimentation rate increased [Unknown]
  - Asthenia [Unknown]
  - Mean platelet volume decreased [Unknown]
  - Haemoglobin decreased [Unknown]
  - Red blood cell count decreased [Unknown]
  - Fatigue [Unknown]
  - Nausea [Unknown]
  - Vomiting [Unknown]
  - Malaise [Unknown]
  - Blood magnesium decreased [Unknown]
  - Decreased appetite [Unknown]
  - Bone pain [Unknown]
